FAERS Safety Report 7066303-X (Version None)
Quarter: 2010Q4

REPORT INFORMATION
  Report Type: 
  Country: None (occurrence: None)
  Receive Date: 20101027
  Receipt Date: 20100528
  Transmission Date: 20110411
  Serious: Yes (Other)
  Sender: FDA-Public Use
  Company Number: US-WYE-H01300907

PATIENT
  Sex: Female

DRUGS (3)
  1. PREMPRO [Suspect]
     Dosage: DOSE AND FREQUENCY NOT PROVIDED
  2. OGEN [Suspect]
  3. CONJUGATED ESTROGENS [Suspect]
     Dosage: DOSE AND FREQUENCY NOT PROVIDED

REACTIONS (1)
  - PULMONARY EMBOLISM [None]
